FAERS Safety Report 13024221 (Version 1)
Quarter: 2016Q4

REPORT INFORMATION
  Report Type: Spontaneous
  Country: PL (occurrence: PL)
  Receive Date: 20161213
  Receipt Date: 20161213
  Transmission Date: 20170207
  Serious: Yes (Life-Threatening, Other)
  Sender: FDA-Public Use
  Company Number: PL-ASTRAZENECA-2016SF29726

PATIENT
  Sex: Male

DRUGS (6)
  1. MEROPENEM. [Suspect]
     Active Substance: MEROPENEM
     Indication: INTRAUTERINE INFECTION
     Route: 042
  2. TAZOBACTAM [Concomitant]
     Active Substance: TAZOBACTAM
     Indication: INTRAUTERINE INFECTION
  3. VANCOMYCIN [Concomitant]
     Active Substance: VANCOMYCIN
     Indication: INTRAUTERINE INFECTION
  4. MEROPENEM. [Suspect]
     Active Substance: MEROPENEM
     Indication: PNEUMONIA
     Route: 042
  5. TAZOBACTAM [Concomitant]
     Active Substance: TAZOBACTAM
     Indication: PNEUMONIA
  6. VANCOMYCIN [Concomitant]
     Active Substance: VANCOMYCIN
     Indication: PNEUMONIA

REACTIONS (3)
  - Product use issue [Unknown]
  - Off label use [Unknown]
  - Meningitis candida [Unknown]
